FAERS Safety Report 13925731 (Version 1)
Quarter: 2017Q3

REPORT INFORMATION
  Report Type: Spontaneous
  Country: GB (occurrence: GB)
  Receive Date: 20170831
  Receipt Date: 20170831
  Transmission Date: 20171127
  Serious: Yes (Hospitalization)
  Sender: FDA-Public Use
  Company Number: GB-PFIZER INC-2017327797

PATIENT
  Age: 71 Year
  Sex: Female

DRUGS (2)
  1. BENDROFLUMETHIAZIDE [Concomitant]
     Active Substance: BENDROFLUMETHIAZIDE
     Indication: HYPERTENSION
     Dosage: 2.5 MG, 1X/DAY
  2. PREMIQUE LOW DOSE [Suspect]
     Active Substance: ESTROGENS, CONJUGATED\MEDROXYPROGESTERONE ACETATE
     Indication: HORMONE REPLACEMENT THERAPY
     Dosage: 1 TABLET, DAILY
     Dates: start: 20170506, end: 20170802

REACTIONS (5)
  - Fatigue [Recovered/Resolved]
  - Hot flush [Unknown]
  - Depressed mood [Recovered/Resolved]
  - Malaise [Recovered/Resolved]
  - Polymenorrhoea [Recovered/Resolved]

NARRATIVE: CASE EVENT DATE: 201705
